FAERS Safety Report 7935758-8 (Version None)
Quarter: 2011Q4

REPORT INFORMATION
  Report Type: 
  Country: None (occurrence: None)
  Receive Date: 20111123
  Receipt Date: 20111118
  Transmission Date: 20120403
  Serious: Yes (Other)
  Sender: FDA-Public Use
  Company Number: PHHY2011AU102003

PATIENT

DRUGS (1)
  1. ONBREZ [Suspect]

REACTIONS (1)
  - ATYPICAL MYCOBACTERIAL INFECTION [None]
